FAERS Safety Report 7980790-1 (Version None)
Quarter: 2011Q4

REPORT INFORMATION
  Report Type: 
  Country: None (occurrence: None)
  Receive Date: 20111214
  Receipt Date: 20111205
  Transmission Date: 20120403
  Serious: Yes (Other)
  Sender: FDA-Public Use
  Company Number: CA-AMGEN-CANSP2011047317

PATIENT
  Age: 49 Year
  Sex: Female
  Weight: 64.853 kg

DRUGS (6)
  1. ARAVA [Concomitant]
     Indication: ARTHRITIS
     Dosage: 10 MG, QD
     Route: 048
     Dates: start: 20110106
  2. MELOXICAM [Concomitant]
     Dosage: 15 MG, QD
     Route: 048
  3. VITAMIN B-12 [Concomitant]
     Dosage: UNK
  4. TRIDURAL [Concomitant]
     Dosage: 20 MG, QD
     Route: 048
  5. METHOTREXATE [Concomitant]
     Indication: ARTHRITIS
     Dosage: 25 MG, QWK
     Route: 058
     Dates: start: 20110819
  6. ENBREL [Suspect]
     Indication: ARTHRITIS
     Dosage: 50 MG, QWK
     Dates: start: 20110819

REACTIONS (3)
  - INJECTION SITE HAEMORRHAGE [None]
  - MIGRAINE [None]
  - INJECTION SITE INDURATION [None]
